FAERS Safety Report 5925581-8 (Version None)
Quarter: 2008Q4

REPORT INFORMATION
  Report Type: 
  Country: None (occurrence: None)
  Receive Date: 20081021
  Receipt Date: 20081014
  Transmission Date: 20090506
  Serious: Yes (Hospitalization)
  Sender: FDA-Public Use
  Company Number: A0735875A

PATIENT
  Age: 29 Year
  Sex: Male

DRUGS (4)
  1. WELLBUTRIN [Suspect]
     Indication: DEPRESSION
     Route: 048
  2. PAXIL [Suspect]
     Indication: DEPRESSION
     Route: 048
  3. PEG-INTRON [Suspect]
     Indication: HEPATITIS C
     Dates: start: 20080307
  4. REBETOL [Suspect]
     Indication: HEPATITIS C
     Dosage: 600MG TWICE PER DAY
     Route: 048
     Dates: start: 20080307

REACTIONS (14)
  - AGGRESSION [None]
  - ALCOHOL POISONING [None]
  - ALCOHOL USE [None]
  - CHEST DISCOMFORT [None]
  - CHILLS [None]
  - DIZZINESS [None]
  - DRUG ABUSE [None]
  - HALLUCINATION, VISUAL [None]
  - INSOMNIA [None]
  - IRRITABILITY [None]
  - LEGAL PROBLEM [None]
  - PAIN [None]
  - PALPITATIONS [None]
  - PYREXIA [None]
